FAERS Safety Report 19678581 (Version 1)
Quarter: 2021Q3

REPORT INFORMATION
  Report Type: Spontaneous
  Country: US (occurrence: US)
  Receive Date: 20210809
  Receipt Date: 20210809
  Transmission Date: 20211014
  Serious: No
  Sender: FDA-Public Use
  Company Number: None

PATIENT
  Age: 70 Year
  Sex: Male
  Weight: 112.5 kg

DRUGS (5)
  1. BAMLANIVIMAB FOR COVID 19 [Suspect]
     Active Substance: BAMLANIVIMAB
     Indication: COVID-19
     Dosage: ?          QUANTITY:1 INFUSION;OTHER FREQUENCY:ONE TIME;?
     Route: 042
     Dates: start: 20210807, end: 20210807
  2. FUROSEMIDE. [Concomitant]
     Active Substance: FUROSEMIDE
  3. METOPROLOL. [Concomitant]
     Active Substance: METOPROLOL
  4. LOSARTAN. [Concomitant]
     Active Substance: LOSARTAN
  5. ALLOPURINOL. [Concomitant]
     Active Substance: ALLOPURINOL

REACTIONS (10)
  - Hypertension [None]
  - Migraine [None]
  - Dyspnoea [None]
  - Pollakiuria [None]
  - Infusion related reaction [None]
  - Pain [None]
  - Nausea [None]
  - Chest pain [None]
  - Retching [None]
  - Diarrhoea [None]

NARRATIVE: CASE EVENT DATE: 20210807
